FAERS Safety Report 5583585-1 (Version None)
Quarter: 2007Q4

REPORT INFORMATION
  Report Type: 
  Country: None (occurrence: None)
  Receive Date: 20071231
  Receipt Date: 20071220
  Transmission Date: 20080405
  Serious: Yes (Hospitalization)
  Sender: FDA-Public Use
  Company Number: 163-21880-07121214

PATIENT
  Sex: Female

DRUGS (2)
  1. REVLIMID [Suspect]
     Indication: MULTIPLE MYELOMA
     Dosage: 15 MG, QD, ORAL; 25 MG, ORAL
     Route: 048
     Dates: start: 20071101, end: 20071101
  2. REVLIMID [Suspect]
     Indication: MULTIPLE MYELOMA
     Dosage: 15 MG, QD, ORAL; 25 MG, ORAL
     Route: 048
     Dates: start: 20071120, end: 20071211

REACTIONS (1)
  - LOWER LIMB FRACTURE [None]
